FAERS Safety Report 21770528 (Version 3)
Quarter: 2022Q4

REPORT INFORMATION
  Report Type: Report from Study
  Country: US (occurrence: US)
  Receive Date: 20221223
  Receipt Date: 20221227
  Transmission Date: 20230113
  Serious: No
  Sender: FDA-Public Use
  Company Number: US-ABBVIE-4242530

PATIENT
  Sex: Female

DRUGS (1)
  1. HUMIRA [Suspect]
     Active Substance: ADALIMUMAB
     Indication: Rheumatoid arthritis
     Route: 058
     Dates: start: 2007

REACTIONS (7)
  - Dizziness [Unknown]
  - Back pain [Recovered/Resolved]
  - Neck pain [Recovered/Resolved]
  - Pain in extremity [Recovered/Resolved]
  - Dislocation of vertebra [Unknown]
  - Fall [Unknown]
  - Chest injury [Unknown]

NARRATIVE: CASE EVENT DATE: 20190101
